FAERS Safety Report 26087099 (Version 2)
Quarter: 2025Q4

REPORT INFORMATION
  Report Type: Spontaneous
  Country: JP (occurrence: JP)
  Receive Date: 20251125
  Receipt Date: 20251212
  Transmission Date: 20260117
  Serious: Yes (Other)
  Sender: NOVARTIS
  Company Number: JP-002147023-NVSJ2025JP011308

PATIENT
  Age: 62 Year
  Sex: Male

DRUGS (1)
  1. ZOLEDRONIC ACID [Suspect]
     Active Substance: ZOLEDRONIC ACID
     Indication: Metastases to bone
     Dosage: UNK
     Route: 065

REACTIONS (5)
  - Osteonecrosis of jaw [Unknown]
  - Fistula discharge [Unknown]
  - Fistula [Unknown]
  - Sensory disturbance [Unknown]
  - Bone sequestrum [Unknown]
